FAERS Safety Report 20590083 (Version 1)
Quarter: 2022Q1

REPORT INFORMATION
  Report Type: Spontaneous
  Country: US (occurrence: US)
  Receive Date: 20220314
  Receipt Date: 20220314
  Transmission Date: 20220423
  Serious: Yes (Other)
  Sender: FDA-Public Use
  Company Number: US-SA-SAC20220309001103

PATIENT
  Age: 59 Year
  Sex: Male

DRUGS (1)
  1. ZANTAC [Suspect]
     Active Substance: RANITIDINE HYDROCHLORIDE
     Indication: Dyspepsia
     Dosage: 75 MG150 MG300 MG
     Dates: start: 199206, end: 201910

REACTIONS (2)
  - Oesophageal carcinoma [Recovering/Resolving]
  - Gastric cancer stage II [Recovering/Resolving]

NARRATIVE: CASE EVENT DATE: 20180601
